FAERS Safety Report 4758986-1 (Version None)
Quarter: 2005Q3

REPORT INFORMATION
  Report Type: 
  Country: None (occurrence: None)
  Receive Date: 20050826
  Receipt Date: 20050809
  Transmission Date: 20060218
  Serious: Yes (Hospitalization)
  Sender: FDA-Public Use
  Company Number: 2005001571

PATIENT
  Age: 49 Year
  Sex: Female

DRUGS (3)
  1. TARCEVA [Suspect]
     Indication: NEUROENDOCRINE CARCINOMA
     Dosage: ORAL
     Route: 048
     Dates: start: 20050714, end: 20050802
  2. MORPHINE [Concomitant]
  3. ATIVAN [Concomitant]

REACTIONS (4)
  - GASTRIC ATONY [None]
  - GASTRITIS [None]
  - NEUROGENIC BLADDER [None]
  - THROMBOSIS [None]
